FAERS Safety Report 10352412 (Version 1)
Quarter: 2014Q3

REPORT INFORMATION
  Report Type: Spontaneous
  Country: US (occurrence: US)
  Receive Date: 20140730
  Receipt Date: 20140730
  Transmission Date: 20150326
  Serious: No
  Sender: FDA-Public Use
  Company Number: US-ABBVIE-14P-163-1192014-00

PATIENT
  Sex: Female
  Weight: 122.58 kg

DRUGS (1)
  1. SYNTHROID [Suspect]
     Active Substance: LEVOTHYROXINE SODIUM
     Indication: HYPOTHYROIDISM
     Dosage: TWO TO THREE MONTHS AGO

REACTIONS (7)
  - Dysphagia [Not Recovered/Not Resolved]
  - Unevaluable event [Not Recovered/Not Resolved]
  - Dysphonia [Not Recovered/Not Resolved]
  - Goitre [Not Recovered/Not Resolved]
  - Drug effect incomplete [Unknown]
  - Pharyngeal oedema [Not Recovered/Not Resolved]
  - Wrong technique in drug usage process [Unknown]
